FAERS Safety Report 6318673-5 (Version None)
Quarter: 2009Q3

REPORT INFORMATION
  Report Type: 
  Country: None (occurrence: None)
  Receive Date: 20090821
  Receipt Date: 20090813
  Transmission Date: 20100115
  Serious: Yes (Other)
  Sender: FDA-Public Use
  Company Number: US-AMGEN-QUU360129

PATIENT
  Sex: Female

DRUGS (3)
  1. ENBREL [Suspect]
     Indication: RHEUMATOID ARTHRITIS
     Route: 058
     Dates: start: 20090330
  2. PLAQUENIL [Concomitant]
     Dates: start: 19960101
  3. METHOTREXATE [Concomitant]
     Dates: start: 19970101

REACTIONS (9)
  - ABDOMINAL DISCOMFORT [None]
  - CONTUSION [None]
  - DYSGEUSIA [None]
  - DYSPNOEA [None]
  - HEART RATE INCREASED [None]
  - INSOMNIA [None]
  - SALIVARY HYPERSECRETION [None]
  - SKIN SWELLING [None]
  - THROAT TIGHTNESS [None]
